FAERS Safety Report 8165497-2 (Version None)
Quarter: 2012Q1

REPORT INFORMATION
  Report Type: 
  Country: None (occurrence: None)
  Receive Date: 20120227
  Receipt Date: 20120215
  Transmission Date: 20120608
  Serious: Yes (Other)
  Sender: FDA-Public Use
  Company Number: US-SANOFI-AVENTIS-2012SA010285

PATIENT
  Age: 55 Year
  Sex: Male

DRUGS (3)
  1. NOVOLOG [Concomitant]
  2. SOLOSTAR [Suspect]
     Dates: start: 20020101
  3. LANTUS [Suspect]
     Dosage: EVERY MORNING DOSE:22 UNIT(S)
     Route: 058
     Dates: start: 20020101

REACTIONS (1)
  - BLINDNESS [None]
